FAERS Safety Report 11460087 (Version 1)
Quarter: 2015Q3

REPORT INFORMATION
  Report Type: Spontaneous
  Country: US (occurrence: US)
  Receive Date: 20150904
  Receipt Date: 20150904
  Transmission Date: 20151125
  Serious: No
  Sender: FDA-Public Use
  Company Number: US-BAUSCH-BL-2015-013747

PATIENT
  Sex: Female

DRUGS (2)
  1. SYNTHROID [Concomitant]
     Active Substance: LEVOTHYROXINE SODIUM
     Indication: PRODUCT USED FOR UNKNOWN INDICATION
  2. PODOFILOX TOPICAL SOLUTION 0.5% [Suspect]
     Active Substance: PODOFILOX
     Indication: VULVOVAGINAL HUMAN PAPILLOMA VIRUS INFECTION
     Route: 061

REACTIONS (1)
  - Paraesthesia [Recovered/Resolved]
